FAERS Safety Report 9693335 (Version 2)
Quarter: 2013Q4

REPORT INFORMATION
  Report Type: Report from Study
  Country: FR (occurrence: FR)
  Receive Date: 20131118
  Receipt Date: 20131220
  Transmission Date: 20140711
  Serious: Yes (Death, Life-Threatening)
  Sender: FDA-Public Use
  Company Number: FR-ROCHE-1301670

PATIENT
  Age: 62 Year
  Sex: Male
  Weight: 78 kg

DRUGS (11)
  1. RITUXIMAB [Suspect]
     Indication: CHRONIC LYMPHOCYTIC LEUKAEMIA
     Route: 041
     Dates: start: 20120530
  2. RITUXIMAB [Suspect]
     Route: 065
     Dates: start: 20120531, end: 20120607
  3. RITUXIMAB [Suspect]
     Route: 065
     Dates: end: 20120614
  4. FLUDARABINE [Suspect]
     Indication: CHRONIC LYMPHOCYTIC LEUKAEMIA
     Route: 065
     Dates: end: 201211
  5. CYCLOPHOSPHAMIDE [Suspect]
     Indication: CHRONIC LYMPHOCYTIC LEUKAEMIA
     Route: 065
     Dates: end: 201211
  6. CISPLATIN [Concomitant]
  7. GEMZAR [Concomitant]
     Route: 065
     Dates: start: 20130923, end: 20130930
  8. GEMZAR [Concomitant]
     Route: 065
     Dates: start: 20131014
  9. DENOSUMAB [Concomitant]
  10. CARBOPLATIN [Concomitant]
     Route: 065
     Dates: start: 20130923
  11. CARBOPLATIN [Concomitant]
     Route: 065
     Dates: start: 20131014

REACTIONS (2)
  - Malignant neoplasm of renal pelvis [Fatal]
  - Renal cancer [Recovered/Resolved]
